FAERS Safety Report 7590184-9 (Version None)
Quarter: 2011Q3

REPORT INFORMATION
  Report Type: 
  Country: None (occurrence: None)
  Receive Date: 20110705
  Receipt Date: 20110626
  Transmission Date: 20111222
  Serious: Yes (Life-Threatening)
  Sender: FDA-Public Use
  Company Number: JP-SANOFI-AVENTIS-2011SA041891

PATIENT
  Age: 69 Year
  Sex: Female
  Weight: 49.4 kg

DRUGS (15)
  1. ASPIRIN [Concomitant]
     Route: 048
     Dates: start: 20090816
  2. RINGER-ACETAT SPECIAL [Concomitant]
     Dosage: 500 TO 1000 ML ONCE DAILY
     Route: 051
     Dates: start: 20090816, end: 20090817
  3. DOPAMINE HYDROCHLORIDE [Concomitant]
     Dosage: 2 TO 8 ML/H
     Route: 051
     Dates: start: 20090816, end: 20090820
  4. PLAVIX [Suspect]
     Route: 048
     Dates: start: 20090817
  5. CRESTOR [Concomitant]
     Route: 048
     Dates: start: 20090816
  6. HEPARIN [Suspect]
     Dosage: DOSE:12000 UNIT(S)
     Route: 041
     Dates: start: 20090816, end: 20090817
  7. LANSOPRAZOLE [Concomitant]
     Indication: PROPHYLAXIS
     Route: 048
     Dates: start: 20090816
  8. PRIMPERAN TAB [Concomitant]
     Dosage: ONCE TO 3 TIMES DAILY
     Route: 051
     Dates: start: 20090816, end: 20090817
  9. ELECTROLYTE SOLUTIONS [Concomitant]
     Route: 051
     Dates: start: 20090816, end: 20090819
  10. NICORANDIL [Concomitant]
     Route: 051
     Dates: start: 20090816, end: 20090818
  11. CEFAZOLIN SODIUM [Concomitant]
     Indication: PROPHYLAXIS
     Route: 051
     Dates: start: 20090816, end: 20090817
  12. PLAVIX [Suspect]
     Route: 048
     Dates: start: 20090816, end: 20090816
  13. HEPARIN [Suspect]
     Dosage: DOSE:10000 UNIT(S)
     Route: 042
     Dates: start: 20090816, end: 20090817
  14. OMEPRAZOLE [Concomitant]
     Indication: PROPHYLAXIS
     Route: 051
     Dates: start: 20090816, end: 20090818
  15. MORPHINE HCL ELIXIR [Concomitant]
     Dosage: 3 TO 9 MG ONCE DAILY
     Route: 051
     Dates: start: 20090816, end: 20090817

REACTIONS (1)
  - CARDIAC TAMPONADE [None]
